FAERS Safety Report 4721973-3 (Version None)
Quarter: 2005Q3

REPORT INFORMATION
  Report Type: 
  Country: None (occurrence: None)
  Receive Date: 20050720
  Receipt Date: 20050707
  Transmission Date: 20060218
  Serious: Yes (Other)
  Sender: FDA-Public Use
  Company Number: GBWYE812607JUL05

PATIENT
  Age: 60 Year
  Sex: Male

DRUGS (2)
  1. GEMTUZUMAB OZOGAMICIN (GEMTUZUMAB OZOGAMICIN, INJECTION) [Suspect]
     Indication: ACUTE MYELOID LEUKAEMIA
  2. CYTARABINE [Concomitant]

REACTIONS (2)
  - INJECTION SITE CELLULITIS [None]
  - MUCOSAL INFLAMMATION [None]
